FAERS Safety Report 16702054 (Version 1)
Quarter: 2019Q3

REPORT INFORMATION
  Report Type: Spontaneous
  Country: DE (occurrence: DE)
  Receive Date: 20190814
  Receipt Date: 20190814
  Transmission Date: 20191004
  Serious: Yes (Hospitalization, Disabling, Other)
  Sender: FDA-Public Use
  Company Number: DE-SA-2019SA083294

PATIENT
  Age: 56 Year
  Sex: Male
  Weight: 76 kg

DRUGS (10)
  1. PANTOZOLE [Concomitant]
     Active Substance: PANTOPRAZOLE SODIUM
     Indication: GASTROINTESTINAL DISORDER PROPHYLAXIS
     Dosage: 40 MG, BID
     Route: 042
     Dates: start: 20190204, end: 20190214
  2. METHYLPREDNISOLONE. [Concomitant]
     Active Substance: METHYLPREDNISOLONE
  3. CABLIVI [Suspect]
     Active Substance: CAPLACIZUMAB-YHDP
     Dosage: 10 MG, QD
     Route: 030
     Dates: end: 201903
  4. TAZOBAC [Concomitant]
     Active Substance: PIPERACILLIN SODIUM\TAZOBACTAM SODIUM
     Indication: PNEUMONIA
     Dosage: 4.5 G, TID
     Route: 042
     Dates: start: 20190205, end: 20190212
  5. CLONIDINE. [Concomitant]
     Active Substance: CLONIDINE
     Indication: SEDATION
     Dosage: 60 MG/H
     Route: 042
     Dates: start: 20190205
  6. PREDNISOLONE. [Concomitant]
     Active Substance: PREDNISOLONE
     Indication: THROMBOTIC THROMBOCYTOPENIC PURPURA
     Dosage: 100 MG, QD
     Route: 042
     Dates: start: 20190205, end: 20190220
  7. PROPOFOL. [Concomitant]
     Active Substance: PROPOFOL
     Indication: SEDATION
     Dosage: DOSE: 60 MG/H
     Route: 042
     Dates: start: 20190204, end: 20190211
  8. CABLIVI [Suspect]
     Active Substance: CAPLACIZUMAB-YHDP
     Indication: THROMBOTIC THROMBOCYTOPENIC PURPURA
     Dosage: 10 MG
     Route: 042
     Dates: start: 20190206
  9. CLONIDINE. [Concomitant]
     Active Substance: CLONIDINE
     Dosage: 60 MG/H
     Route: 042
     Dates: start: 20190207, end: 20190213
  10. CLEXANE [Concomitant]
     Active Substance: ENOXAPARIN SODIUM
     Indication: THROMBOSIS PROPHYLAXIS
     Dosage: DOSE: 0.4, QD
     Route: 058
     Dates: start: 20190207, end: 20190306

REACTIONS (4)
  - Cerebral infarction [Recovering/Resolving]
  - Pericardial effusion [Recovering/Resolving]
  - Dysarthria [Unknown]
  - Hemiparesis [Recovering/Resolving]

NARRATIVE: CASE EVENT DATE: 20190204
